FAERS Safety Report 9940681 (Version 3)
Quarter: 2014Q1

REPORT INFORMATION
  Report Type: Spontaneous
  Country: CA (occurrence: CA)
  Receive Date: 20140303
  Receipt Date: 20140317
  Transmission Date: 20141002
  Serious: Yes (Other)
  Sender: FDA-Public Use
  Company Number: CA-SA-2014SA019333

PATIENT
  Age: 37 Year
  Sex: Female

DRUGS (6)
  1. TAXOTERE [Suspect]
     Indication: BREAST CANCER
     Route: 065
     Dates: start: 20120622
  2. PERJETA [Suspect]
     Indication: BREAST CANCER
     Route: 042
     Dates: start: 20131119
  3. HERCEPTIN [Suspect]
     Indication: BREAST CANCER
     Route: 065
     Dates: start: 20120622
  4. CALTRATE [Concomitant]
  5. DENOSUMAB [Concomitant]
     Dosage: D-CARE (INJECTION EVERY 3 MONTHS WITH DENOSUMAB)
  6. VIADERM-KC [Concomitant]

REACTIONS (9)
  - Blood bilirubin decreased [Unknown]
  - Haemoglobin decreased [Unknown]
  - Red cell distribution width increased [Unknown]
  - Mean platelet volume decreased [Unknown]
  - Lymphocyte count decreased [Unknown]
  - Lymphocyte count decreased [Unknown]
  - Oral herpes [Recovered/Resolved]
  - Nasopharyngitis [Not Recovered/Not Resolved]
  - Cough [Recovering/Resolving]
